FAERS Safety Report 7237507-8 (Version None)
Quarter: 2011Q1

REPORT INFORMATION
  Report Type: 
  Country: None (occurrence: None)
  Receive Date: 20110121
  Receipt Date: 20110114
  Transmission Date: 20110831
  Serious: Yes (Death)
  Sender: FDA-Public Use
  Company Number: BR-PFIZER INC-2011009893

PATIENT
  Age: 85 Year
  Sex: Male

DRUGS (1)
  1. DETRUSITOL LA [Suspect]
     Dosage: 4 MG, UNK
     Route: 048
     Dates: start: 20070114

REACTIONS (2)
  - PARKINSON'S DISEASE [None]
  - DEATH [None]
